FAERS Safety Report 8542178-4 (Version None)
Quarter: 2012Q3

REPORT INFORMATION
  Report Type: 
  Country: None (occurrence: None)
  Receive Date: 20120726
  Receipt Date: 20111010
  Transmission Date: 20120928
  Serious: No
  Sender: FDA-Public Use
  Company Number: US-ASTRAZENECA-2011SE61027

PATIENT

DRUGS (3)
  1. BACTRIM DS [Concomitant]
  2. SEROQUEL [Suspect]
     Route: 048
  3. PHENAZOPYRIDINE HCL TAB [Concomitant]

REACTIONS (2)
  - ANXIETY [None]
  - URINARY TRACT INFECTION [None]
